FAERS Safety Report 4771002-0 (Version None)
Quarter: 2005Q4

REPORT INFORMATION
  Report Type: 
  Country: None (occurrence: None)
  Receive Date: 20050914
  Receipt Date: 20050907
  Transmission Date: 20060501
  Serious: Yes (Death, Hospitalization)
  Sender: FDA-Public Use
  Company Number: STA-AE-05-MTX-020

PATIENT
  Age: 61 Year
  Sex: Male

DRUGS (10)
  1. METHOTREXATE [Suspect]
     Indication: ACUTE LEUKAEMIA
     Dosage: 16 TABLETS - QD - ORAL
     Route: 048
  2. PURINETHOL [Suspect]
     Indication: ACUTE LYMPHOCYTIC LEUKAEMIA
     Dosage: 5 TABLETS -QD - ORAL
     Route: 048
  3. POSACONAZOLE [Suspect]
     Indication: FUNGAL INFECTION
     Dosage: 800 MG-QD- ORAL
     Route: 048
     Dates: start: 20050629
  4. HEPARIN [Suspect]
  5. THIAMINE HCL [Concomitant]
  6. ALDACTONE [Concomitant]
  7. CELECTOL [Concomitant]
  8. INSULIN [Concomitant]
  9. OMEPRAZOLE [Concomitant]
  10. ZELITREX (VALACICLOVIR) [Concomitant]

REACTIONS (9)
  - ANAEMIA [None]
  - COUGH [None]
  - DISEASE PROGRESSION [None]
  - DYSPHONIA [None]
  - FATIGUE [None]
  - HYPOTENSION [None]
  - LEUKOPENIA [None]
  - PSEUDOMONAL SEPSIS [None]
  - THROMBOCYTOPENIA [None]
